FAERS Safety Report 20704528 (Version 2)
Quarter: 2022Q2

REPORT INFORMATION
  Report Type: Spontaneous
  Country: JP (occurrence: JP)
  Receive Date: 20220413
  Receipt Date: 20220426
  Transmission Date: 20220721
  Serious: Yes (Hospitalization)
  Sender: FDA-Public Use
  Company Number: JP-ABBVIE-22K-087-4356423-00

PATIENT
  Age: 10 Year
  Sex: Female

DRUGS (1)
  1. RINVOQ [Suspect]
     Active Substance: UPADACITINIB
     Indication: Dermatitis atopic
     Route: 048
     Dates: start: 20211222, end: 20220407

REACTIONS (2)
  - Pyrexia [Not Recovered/Not Resolved]
  - Bacterial test positive [Unknown]

NARRATIVE: CASE EVENT DATE: 20220407
